FAERS Safety Report 10177538 (Version 4)
Quarter: 2014Q2

REPORT INFORMATION
  Report Type: Spontaneous
  Country: US (occurrence: US)
  Receive Date: 20140516
  Receipt Date: 20140611
  Transmission Date: 20141212
  Serious: Yes (Hospitalization, Other)
  Sender: FDA-Public Use
  Company Number: US-BAXTER-2014BAX024304

PATIENT
  Age: 78 Year
  Sex: Female

DRUGS (2)
  1. DIANEAL LOW CALCIUM [Suspect]
     Indication: PERITONEAL DIALYSIS
     Route: 033
  2. DIANEAL LOW CALCIUM [Suspect]
     Indication: RENAL FAILURE CHRONIC
     Route: 033
     Dates: end: 20140512

REACTIONS (6)
  - Convulsion [Recovering/Resolving]
  - Full blood count increased [Recovering/Resolving]
  - Dizziness [Recovering/Resolving]
  - Abdominal abscess [Recovering/Resolving]
  - Nausea [Recovering/Resolving]
  - Procedural pain [Unknown]
